FAERS Safety Report 6786780-9 (Version None)
Quarter: 2010Q2

REPORT INFORMATION
  Report Type: 
  Country: None (occurrence: None)
  Receive Date: 20100623
  Receipt Date: 20100617
  Transmission Date: 20101027
  Serious: Yes (Life-Threatening, Hospitalization)
  Sender: FDA-Public Use
  Company Number: PHHY2010NL39537

PATIENT
  Sex: Male

DRUGS (8)
  1. ZOMETA [Suspect]
     Dosage: 4MG/5ML
     Route: 042
     Dates: start: 20091109
  2. ZOMETA [Suspect]
     Dosage: 4MG/5ML
     Route: 042
     Dates: start: 20100108
  3. ZOMETA [Suspect]
     Dosage: 4MG/5ML
     Route: 042
     Dates: start: 20100201
  4. ZOMETA [Suspect]
     Dosage: 4MG/5ML
     Route: 042
     Dates: start: 20100302
  5. ZOMETA [Suspect]
     Dosage: 4MG/5ML
     Route: 042
     Dates: start: 20100329
  6. ZOMETA [Suspect]
     Dosage: 4MG/5ML
     Route: 042
     Dates: start: 20100426
  7. ZOMETA [Suspect]
     Dosage: 4MG/5ML
     Route: 042
     Dates: start: 20100525
  8. RADIOTHERAPY [Concomitant]
     Dosage: UNK
     Dates: start: 20100611

REACTIONS (3)
  - GAIT DISTURBANCE [None]
  - HYPOAESTHESIA [None]
  - SPINAL CORD INJURY [None]
